FAERS Safety Report 19566814 (Version 1)
Quarter: 2021Q3

REPORT INFORMATION
  Report Type: Other
  Country: JP (occurrence: JP)
  Receive Date: 20210716
  Receipt Date: 20210716
  Transmission Date: 20211014
  Serious: Yes (Other)
  Sender: FDA-Public Use
  Company Number: JP-ROCHE-2870982

PATIENT
  Age: 60 Year
  Sex: Female
  Weight: 48.1 kg

DRUGS (10)
  1. BEVACIZUMAB. [Suspect]
     Active Substance: BEVACIZUMAB
     Dosage: 720 MILLIGRAM
     Route: 041
     Dates: start: 20201119, end: 20210107
  2. BEVACIZUMAB. [Suspect]
     Active Substance: BEVACIZUMAB
     Indication: LUNG ADENOCARCINOMA
     Route: 041
     Dates: start: 20201022
  3. BEVACIZUMAB. [Suspect]
     Active Substance: BEVACIZUMAB
     Dosage: 720 MILLIGRAM
     Route: 041
     Dates: start: 2020, end: 20201113
  4. CARBOPLATIN. [Concomitant]
     Active Substance: CARBOPLATIN
     Dosage: 450 MILLIGRAM
     Route: 041
     Dates: end: 20201113
  5. CARBOPLATIN. [Concomitant]
     Active Substance: CARBOPLATIN
     Dosage: 430 MILLIGRAM
     Route: 041
     Dates: start: 20201119
  6. CARBOPLATIN. [Concomitant]
     Active Substance: CARBOPLATIN
     Dosage: 380 MILLIGRAM
     Route: 041
     Dates: end: 20210107
  7. PACLITAXEL. [Concomitant]
     Active Substance: PACLITAXEL
     Indication: LUNG ADENOCARCINOMA
     Dosage: 255 MILLIGRAM
     Route: 041
     Dates: start: 20201022
  8. PACLITAXEL. [Concomitant]
     Active Substance: PACLITAXEL
     Dosage: 200 MILLIGRAM
     Route: 041
     Dates: start: 2020, end: 20210107
  9. ATEZOLIZUMAB. [Suspect]
     Active Substance: ATEZOLIZUMAB
     Indication: LUNG ADENOCARCINOMA
     Dosage: DATE OF MOST RECENT DOSE: 18/FEB/2021
     Route: 041
     Dates: start: 20201022
  10. CARBOPLATIN. [Concomitant]
     Active Substance: CARBOPLATIN
     Indication: LUNG ADENOCARCINOMA
     Dosage: 465 MILLIGRAM
     Route: 041
     Dates: start: 20201022

REACTIONS (1)
  - Febrile neutropenia [Recovered/Resolved]

NARRATIVE: CASE EVENT DATE: 20201104
